FAERS Safety Report 8121431-2 (Version None)
Quarter: 2012Q1

REPORT INFORMATION
  Report Type: 
  Country: None (occurrence: None)
  Receive Date: 20120208
  Receipt Date: 20120124
  Transmission Date: 20120608
  Serious: Yes (Other)
  Sender: FDA-Public Use
  Company Number: AMAG201200005

PATIENT
  Age: 41 Year
  Sex: Female
  Weight: 59.9 kg

DRUGS (6)
  1. LIBRAX [Concomitant]
  2. FOLIC ACID [Concomitant]
  3. VITAMIN B1 TAB [Concomitant]
  4. FERROUS SULFATE TAB [Concomitant]
  5. MULTIVITAMIN [Concomitant]
  6. FERAHEME [Suspect]
     Indication: IRON DEFICIENCY ANAEMIA
     Dosage: 1 ML, SINGLE (30 MG), IV BOLUS
     Dates: start: 20111026, end: 20111026

REACTIONS (18)
  - FAECAL INCONTINENCE [None]
  - TREMOR [None]
  - HYPOTENSION [None]
  - HYPERHIDROSIS [None]
  - TACHYCARDIA [None]
  - PULSE ABNORMAL [None]
  - URINARY INCONTINENCE [None]
  - PRURITUS [None]
  - RASH [None]
  - NAUSEA [None]
  - HYPERSENSITIVITY [None]
  - VOMITING [None]
  - OXYGEN SATURATION DECREASED [None]
  - BAND NEUTROPHIL PERCENTAGE INCREASED [None]
  - FLUSHING [None]
  - NERVOUSNESS [None]
  - UNRESPONSIVE TO STIMULI [None]
  - DISORIENTATION [None]
